FAERS Safety Report 18064726 (Version 1)
Quarter: 2020Q3

REPORT INFORMATION
  Report Type: Spontaneous
  Country: GB (occurrence: GB)
  Receive Date: 20200724
  Receipt Date: 20200724
  Transmission Date: 20201103
  Serious: Yes (Other)
  Sender: FDA-Public Use
  Company Number: GB-TEVA-2020-GB-1804009

PATIENT
  Age: 47 Year
  Sex: Male
  Weight: 82.9 kg

DRUGS (16)
  1. ZOPICLONE [Concomitant]
     Active Substance: ZOPICLONE
  2. EDOXABAN [Concomitant]
     Active Substance: EDOXABAN TOSYLATE
  3. PROCHLORPERAZINE MALEATE. [Suspect]
     Active Substance: PROCHLORPERAZINE MALEATE
     Indication: VERTIGO CNS ORIGIN
     Dosage: 5 MG
     Route: 048
     Dates: start: 20200517, end: 20200522
  4. PROMETHAZINE TEOCLATE [Suspect]
     Active Substance: PROMETHAZINE TEOCLATE
     Indication: VERTIGO CNS ORIGIN
     Dosage: 25MG
     Route: 048
     Dates: start: 20200611, end: 20200617
  5. CODEINE [Concomitant]
     Active Substance: CODEINE
  6. DALTEPARIN [Concomitant]
     Active Substance: DALTEPARIN
  7. CINNARIZINE [Suspect]
     Active Substance: CINNARIZINE
     Indication: VERTIGO CNS ORIGIN
     Dosage: 30MG
     Route: 048
     Dates: start: 20200617, end: 20200619
  8. ATORVASTATIN [Concomitant]
     Active Substance: ATORVASTATIN
  9. ORAMORPH [Concomitant]
     Active Substance: MORPHINE SULFATE
  10. LAXIDO [Concomitant]
     Active Substance: POLYETHYLENE GLYCOL 3350\POTASSIUM CHLORIDE\SODIUM BICARBONATE\SODIUM CHLORIDE
  11. ONDANSETRON [Concomitant]
     Active Substance: ONDANSETRON
  12. PROMETHAZINE TEOCLATE [Suspect]
     Active Substance: PROMETHAZINE TEOCLATE
     Dosage: 25MG
     Route: 048
     Dates: start: 20200521, end: 20200527
  13. GABAPENTIN. [Concomitant]
     Active Substance: GABAPENTIN
  14. CYCLIZINE HYDROCHLORIDE [Suspect]
     Active Substance: CYCLIZINE HYDROCHLORIDE
     Indication: VERTIGO CNS ORIGIN
     Dosage: 150 MILLIGRAM DAILY;
     Route: 048
     Dates: start: 20200510, end: 20200603
  15. AMOXICILLIN. [Concomitant]
     Active Substance: AMOXICILLIN
  16. PROPRANOLOL HYDROCHLORIDE. [Concomitant]
     Active Substance: PROPRANOLOL HYDROCHLORIDE

REACTIONS (1)
  - Liver function test abnormal [Recovered/Resolved with Sequelae]

NARRATIVE: CASE EVENT DATE: 20200525
